FAERS Safety Report 8212365-3 (Version None)
Quarter: 2012Q1

REPORT INFORMATION
  Report Type: 
  Country: None (occurrence: None)
  Receive Date: 20120315
  Receipt Date: 20120307
  Transmission Date: 20120608
  Serious: Yes (Hospitalization)
  Sender: FDA-Public Use
  Company Number: US-JNJFOC-20091205874

PATIENT
  Sex: Male
  Weight: 75 kg

DRUGS (10)
  1. LIPITOR [Concomitant]
     Indication: BLOOD CHOLESTEROL INCREASED
     Route: 048
  2. LUPRON [Concomitant]
     Indication: HORMONE THERAPY
     Dates: start: 20080615
  3. AMLODIPINE [Concomitant]
     Indication: HYPERTENSION
     Route: 048
     Dates: start: 20090602
  4. LUPRON [Concomitant]
     Indication: CANCER HORMONAL THERAPY
     Route: 030
     Dates: start: 20090728
  5. CALCIUM AND VITAMIN D [Concomitant]
     Indication: MEDICAL DIET
     Route: 048
     Dates: start: 20090127
  6. COLACE [Concomitant]
     Indication: CONSTIPATION
     Route: 048
     Dates: start: 20090127
  7. ABIRATERONE ACETATE [Suspect]
     Indication: PROSTATE CANCER METASTATIC
     Route: 048
     Dates: start: 20090929, end: 20091215
  8. ABIRATERONE ACETATE [Suspect]
     Route: 048
     Dates: start: 20090728, end: 20090913
  9. PREDNISONE TAB [Suspect]
     Indication: PROSTATE CANCER METASTATIC
     Route: 048
     Dates: start: 20090728
  10. ASPIRIN [Concomitant]
     Indication: CARDIOVASCULAR EVENT PROPHYLAXIS
     Route: 048

REACTIONS (1)
  - PARAINFLUENZAE VIRUS INFECTION [None]
